FAERS Safety Report 20531833 (Version 1)
Quarter: 2022Q1

REPORT INFORMATION
  Report Type: Spontaneous
  Country: US (occurrence: None)
  Receive Date: 20220228
  Receipt Date: 20220228
  Transmission Date: 20220423
  Serious: Yes (Life-Threatening, Hospitalization, Disabling)
  Sender: FDA-Public Use
  Company Number: None

PATIENT
  Age: 51 Year
  Sex: Female
  Weight: 144.45 kg

DRUGS (1)
  1. LISINOPRIL [Suspect]
     Active Substance: LISINOPRIL

REACTIONS (6)
  - Drug hypersensitivity [None]
  - Nerve injury [None]
  - Neuralgia [None]
  - Impaired work ability [None]
  - Speech disorder [None]
  - Impaired quality of life [None]

NARRATIVE: CASE EVENT DATE: 20210805
